FAERS Safety Report 6276182-6 (Version None)
Quarter: 2009Q3

REPORT INFORMATION
  Report Type: 
  Country: None (occurrence: None)
  Receive Date: 20090722
  Receipt Date: 20090718
  Transmission Date: 20100115
  Serious: Yes (Hospitalization)
  Sender: FDA-Public Use
  Company Number: US-BRISTOL-MYERS SQUIBB COMPANY-14695332

PATIENT
  Age: 66 Year
  Sex: Male
  Weight: 56 kg

DRUGS (9)
  1. ERBITUX [Suspect]
     Indication: RECTAL CANCER
     Dosage: ERBITUX 100MG VIALS (5 VIALS TAKEN).
     Route: 042
     Dates: start: 20090413
  2. METOPROLOL SUCCINATE [Concomitant]
  3. ZOFRAN [Concomitant]
  4. COMPAZINE [Concomitant]
  5. IRINOTECAN HCL [Concomitant]
     Route: 042
  6. LEUCOVORIN CALCIUM [Concomitant]
     Route: 042
  7. FLUOROURACIL [Concomitant]
     Route: 042
  8. ALOXI [Concomitant]
     Indication: PREMEDICATION
     Route: 042
  9. DECADRON [Concomitant]
     Indication: PREMEDICATION
     Route: 042

REACTIONS (1)
  - ANEURYSM [None]
